FAERS Safety Report 5627047-1 (Version None)
Quarter: 2008Q1

REPORT INFORMATION
  Report Type: 
  Country: None (occurrence: None)
  Receive Date: 20080117
  Receipt Date: 20070613
  Transmission Date: 20080703
  Serious: Yes (Hospitalization)
  Sender: FDA-Public Use
  Company Number: E2020-01349-SPO-US

PATIENT
  Age: 88 Year
  Sex: Male

DRUGS (15)
  1. ARICEPT [Suspect]
     Indication: DEMENTIA
     Dosage: 10 MG, 1 IN 1 D, ORAL
     Route: 048
     Dates: start: 19970101
  2. ASPIRIN [Suspect]
     Indication: CEREBROVASCULAR ACCIDENT PROPHYLAXIS
     Dosage: 325 MG, 1 IN 1 D, ORAL
     Route: 048
  3. QUINAPRIL HCL [Concomitant]
  4. ALDACTONE [Concomitant]
  5. LASIX [Concomitant]
  6. SPIRIVA [Concomitant]
  7. DUO-NEB (MEDIHALER-DUO) [Concomitant]
  8. EPOGEN [Concomitant]
  9. PROTONIX [Concomitant]
  10. ZOLOFT [Concomitant]
  11. RISPERDAL [Concomitant]
  12. IRON (IRON) [Concomitant]
  13. MULTI-VITAMINS [Concomitant]
  14. UNSPECIFIED SUPPLEMENTS [Concomitant]
  15. UNSPECIFIED OINTMENTS [Concomitant]

REACTIONS (1)
  - ANAEMIA [None]
